FAERS Safety Report 8804883 (Version 2)
Quarter: 2015Q1

REPORT INFORMATION
  Report Type: Report from Study
  Country: US (occurrence: US)
  Receive Date: 20120924
  Receipt Date: 20150226
  Transmission Date: 20150721
  Serious: Yes (Death)
  Sender: FDA-Public Use
  Company Number: US-ROCHE-1101938

PATIENT
  Sex: Male

DRUGS (10)
  1. BENADRYL [Concomitant]
     Active Substance: DIPHENHYDRAMINE HYDROCHLORIDE
     Route: 065
  2. ZOFRAN [Concomitant]
     Active Substance: ONDANSETRON HYDROCHLORIDE
     Route: 065
  3. DEXAMETHASONE. [Concomitant]
     Active Substance: DEXAMETHASONE
     Route: 065
  4. TAGAMET [Concomitant]
     Active Substance: CIMETIDINE
     Route: 065
  5. ZANTAC [Concomitant]
     Active Substance: RANITIDINE HYDROCHLORIDE
     Route: 065
  6. 5-FLUOROURACIL [Concomitant]
     Active Substance: FLUOROURACIL
  7. HEPARIN [Concomitant]
     Active Substance: HEPARIN SODIUM
     Route: 065
  8. DECADRON [Concomitant]
     Active Substance: DEXAMETHASONE
     Route: 065
  9. AVASTIN [Suspect]
     Active Substance: BEVACIZUMAB
     Indication: GASTRIC CANCER
     Route: 042
     Dates: start: 20080429
  10. OXALIPLATIN. [Concomitant]
     Active Substance: OXALIPLATIN

REACTIONS (2)
  - Off label use [Unknown]
  - Death [Fatal]
